FAERS Safety Report 6284078-9 (Version None)
Quarter: 2009Q3

REPORT INFORMATION
  Report Type: 
  Country: None (occurrence: None)
  Receive Date: 20090722
  Receipt Date: 20090707
  Transmission Date: 20100115
  Serious: Yes (Death, Other)
  Sender: FDA-Public Use
  Company Number: MC200900244

PATIENT

DRUGS (2)
  1. CLEVIPREX [Suspect]
     Indication: BLOOD PRESSURE MANAGEMENT
     Dosage: 1-2 MG, HR, INTRAVENOUS; 14 MG, HR, INTRAVENOUS
     Route: 042
     Dates: start: 20090701, end: 20090701
  2. CLEVIPREX [Suspect]
     Indication: PREOPERATIVE CARE
     Dosage: 1-2 MG, HR, INTRAVENOUS; 14 MG, HR, INTRAVENOUS
     Route: 042
     Dates: start: 20090701, end: 20090701

REACTIONS (2)
  - POST PROCEDURAL COMPLICATION [None]
  - PULSE ABSENT [None]
